FAERS Safety Report 9175812 (Version 1)
Quarter: 2013Q1

REPORT INFORMATION
  Report Type: Report from Study
  Country: DE (occurrence: DE)
  Receive Date: 20130320
  Receipt Date: 20130320
  Transmission Date: 20140127
  Serious: Yes (Hospitalization)
  Sender: FDA-Public Use
  Company Number: DE-GILEAD-2013-0070833

PATIENT
  Age: 63 Year
  Sex: Male

DRUGS (15)
  1. AZTREONAM LYSINE [Suspect]
     Indication: BRONCHIECTASIS
     Dosage: 75 MG, TID
     Route: 055
     Dates: start: 20130130, end: 20130227
  2. PREDNISOLONE [Concomitant]
     Indication: ASTHMA
  3. FLUTIDE [Concomitant]
  4. OMEPRAZOLE [Concomitant]
  5. SYMBICORT [Concomitant]
     Indication: BRONCHIECTASIS
     Dosage: UNK
     Dates: start: 200901
  6. SPIRIVA [Concomitant]
     Indication: ASTHMA
     Dosage: UNK
     Dates: start: 200610
  7. VOTUM                              /01635402/ [Concomitant]
     Indication: BRONCHIECTASIS
     Dosage: UNK
     Dates: start: 20120910
  8. ISOPTIN                            /00014302/ [Concomitant]
  9. METHIZOL [Concomitant]
  10. ACC LONG [Concomitant]
  11. XARELTO [Concomitant]
  12. NYSTATIN [Concomitant]
  13. SALBUTAMOL [Concomitant]
  14. CALCILAC [Concomitant]
  15. FLUTICA [Concomitant]

REACTIONS (4)
  - Fungal oesophagitis [Recovered/Resolved]
  - Atrial fibrillation [Recovered/Resolved]
  - Hyperthyroidism [Recovered/Resolved]
  - Asthma [Recovered/Resolved]
